FAERS Safety Report 9163259 (Version 1)
Quarter: 2013Q1

REPORT INFORMATION
  Report Type: Spontaneous
  Country: GB (occurrence: GB)
  Receive Date: 20130314
  Receipt Date: 20130314
  Transmission Date: 20140127
  Serious: Yes (Other)
  Sender: FDA-Public Use
  Company Number: GB-GLAXOSMITHKLINE-B0873164A

PATIENT
  Age: 42 Year
  Sex: Female
  Weight: 67.58 kg

DRUGS (4)
  1. LAMOTRIGINE [Suspect]
     Indication: CONVULSION
     Dosage: 25MG PER DAY
  2. LAMOTRIGINE [Suspect]
     Indication: CONVULSION
  3. MIRENA [Concomitant]
     Indication: CONTRACEPTION
     Route: 015
     Dates: start: 20110920
  4. CITALOPRAM [Concomitant]
     Indication: PANIC ATTACK

REACTIONS (3)
  - Myalgia [Unknown]
  - Arthralgia [Unknown]
  - Headache [Unknown]
